FAERS Safety Report 23636166 (Version 1)
Quarter: 2024Q1

REPORT INFORMATION
  Report Type: Spontaneous
  Country: JP (occurrence: JP)
  Receive Date: 20240315
  Receipt Date: 20240315
  Transmission Date: 20240410
  Serious: Yes (Death, Hospitalization)
  Sender: FDA-Public Use
  Company Number: JP-MYLANLABS-2024M1022177

PATIENT
  Age: 81 Year
  Sex: Male
  Weight: 57.9 kg

DRUGS (10)
  1. CARBOPLATIN [Suspect]
     Active Substance: CARBOPLATIN
     Indication: Squamous cell carcinoma of lung
     Dosage: 270 MG (ONE TIME), EVERY 3 WEEKS
     Route: 042
     Dates: start: 20230720
  2. CARBOPLATIN [Suspect]
     Active Substance: CARBOPLATIN
     Dosage: 180 MG (ONE TIME), EVERY 3 WEEKS
     Route: 042
     Dates: start: 20230817, end: 20230907
  3. IMFINZI [Suspect]
     Active Substance: DURVALUMAB
     Indication: Squamous cell carcinoma of lung
     Dosage: 1500 MG (ONE TIME), EVERY 3 WEEKS
     Route: 042
     Dates: start: 20230720, end: 20230907
  4. IMJUDO [Suspect]
     Active Substance: TREMELIMUMAB\TREMELIMUMAB-ACTL
     Indication: Squamous cell carcinoma of lung
     Dosage: 75 MG (ONE TIME), EVERY 3 WEEKS
     Route: 042
     Dates: start: 20230720, end: 20230907
  5. ABRAXANE [Suspect]
     Active Substance: PACLITAXEL
     Indication: Squamous cell carcinoma of lung
     Dosage: 125 MILLIGRAM, QW
     Route: 042
     Dates: start: 20230720
  6. ABRAXANE [Suspect]
     Active Substance: PACLITAXEL
     Dosage: 80 MILLIGRAM, QW
     Route: 042
     Dates: start: 20230817, end: 20230914
  7. BISOPROLOL FUMARATE [Concomitant]
     Active Substance: BISOPROLOL FUMARATE
     Indication: Product used for unknown indication
     Dosage: UNK
     Route: 048
  8. ROSUVASTATIN [Concomitant]
     Active Substance: ROSUVASTATIN
     Indication: Product used for unknown indication
     Dosage: UNK
     Route: 048
     Dates: end: 20231008
  9. EDOXABAN TOSYLATE [Concomitant]
     Active Substance: EDOXABAN TOSYLATE
     Indication: Product used for unknown indication
     Dosage: UNK
     Route: 048
     Dates: start: 20230526, end: 20231008
  10. REBAMIPIDE [Concomitant]
     Active Substance: REBAMIPIDE
     Indication: Product used for unknown indication
     Dosage: UNK
     Route: 048

REACTIONS (1)
  - Interstitial lung disease [Fatal]

NARRATIVE: CASE EVENT DATE: 20231005
